FAERS Safety Report 15804040 (Version 1)
Quarter: 2019Q1

REPORT INFORMATION
  Report Type: Spontaneous
  Country: US (occurrence: US)
  Receive Date: 20190109
  Receipt Date: 20190109
  Transmission Date: 20190417
  Serious: Yes (Disabling)
  Sender: FDA-Public Use
  Company Number: None

PATIENT
  Age: 75 Year
  Sex: Male
  Weight: 56.25 kg

DRUGS (3)
  1. METHIMAZOLE. [Concomitant]
     Active Substance: METHIMAZOLE
  2. RANITIDINE HCL [Suspect]
     Active Substance: RANITIDINE HYDROCHLORIDE
     Indication: GASTROOESOPHAGEAL REFLUX DISEASE
     Dosage: ?          QUANTITY:1 TABLET(S);OTHER ROUTE:PEG TUBE?
     Dates: start: 20181127, end: 20181203
  3. CULTURELLE PROBIOTICS [Concomitant]

REACTIONS (1)
  - Abdominal pain upper [None]

NARRATIVE: CASE EVENT DATE: 20181203
